FAERS Safety Report 7947040-3 (Version None)
Quarter: 2011Q4

REPORT INFORMATION
  Report Type: 
  Country: None (occurrence: None)
  Receive Date: 20111129
  Receipt Date: 20110927
  Transmission Date: 20120403
  Serious: No
  Sender: FDA-Public Use
  Company Number: US-ASTRAZENECA-2011SE18893

PATIENT
  Age: 79 Year
  Sex: Female
  Weight: 69.4 kg

DRUGS (4)
  1. VIMOVO [Suspect]
     Indication: PAIN
     Dosage: 500 / 20
     Route: 048
     Dates: start: 20110324
  2. CRESTOR [Concomitant]
  3. LOTREL [Concomitant]
  4. HYDROCHLOROTHIAZIDE [Concomitant]

REACTIONS (8)
  - HEART RATE IRREGULAR [None]
  - INFLUENZA [None]
  - HERPES ZOSTER [None]
  - POST HERPETIC NEURALGIA [None]
  - RASH PAPULAR [None]
  - ASTHENIA [None]
  - ABDOMINAL PAIN [None]
  - WEIGHT DECREASED [None]
